FAERS Safety Report 21926331 (Version 1)
Quarter: 2023Q1

REPORT INFORMATION
  Report Type: Spontaneous
  Country: US (occurrence: None)
  Receive Date: 20230128
  Receipt Date: 20230128
  Transmission Date: 20230418
  Serious: Yes (Other)
  Sender: FDA-Public Use
  Company Number: None

PATIENT
  Age: 13 Year
  Sex: Female
  Weight: 52.16 kg

DRUGS (2)
  1. PROACTIV [Suspect]
     Active Substance: BENZOYL PEROXIDE
  2. Proa Clive [Concomitant]
     Dates: end: 20230127

REACTIONS (2)
  - Urticaria [None]
  - Burning sensation [None]

NARRATIVE: CASE EVENT DATE: 20230127
